FAERS Safety Report 10258611 (Version 1)
Quarter: 2014Q2

REPORT INFORMATION
  Report Type: Spontaneous
  Country: US (occurrence: None)
  Receive Date: 20140624
  Receipt Date: 20140624
  Transmission Date: 20141212
  Serious: Yes (Hospitalization)
  Sender: FDA-Public Use
  Company Number: None

PATIENT
  Age: 50 Year
  Sex: Female
  Weight: 81.65 kg

DRUGS (1)
  1. AMBIEN [Suspect]
     Dosage: 1 NIGHT AT BEDTIME TAKEN BY MOUTH
     Route: 048

REACTIONS (5)
  - Drug effect decreased [None]
  - Abnormal behaviour [None]
  - Incorrect dose administered [None]
  - Coma [None]
  - Drug dependence [None]
